FAERS Safety Report 14832706 (Version 2)
Quarter: 2018Q2

REPORT INFORMATION
  Report Type: Report from Study
  Country: US (occurrence: US)
  Receive Date: 20180501
  Receipt Date: 20180601
  Transmission Date: 20180711
  Serious: Yes (Hospitalization)
  Sender: FDA-Public Use
  Company Number: US-EISAI MEDICAL RESEARCH-EC-2017-032968

PATIENT
  Sex: Female

DRUGS (1)
  1. LENVIMA [Suspect]
     Active Substance: LENVATINIB
     Indication: HEPATOCELLULAR CARCINOMA
     Route: 048
     Dates: start: 20171031

REACTIONS (9)
  - Blood sodium increased [Not Recovered/Not Resolved]
  - Decreased appetite [Recovering/Resolving]
  - Acute kidney injury [Recovered/Resolved]
  - Protein urine present [Not Recovered/Not Resolved]
  - Blood sodium decreased [Recovered/Resolved]
  - Platelet count decreased [Recovered/Resolved]
  - Dyspnoea [Recovered/Resolved]
  - Fatigue [Recovering/Resolving]
  - Blood creatinine increased [Recovered/Resolved]

NARRATIVE: CASE EVENT DATE: 2017
